FAERS Safety Report 10524922 (Version 1)
Quarter: 2014Q4

REPORT INFORMATION
  Report Type: Spontaneous
  Country: US (occurrence: None)
  Receive Date: 20141015
  Receipt Date: 20141015
  Transmission Date: 20150528
  Serious: Yes (Hospitalization)
  Sender: FDA-Public Use
  Company Number: None

PATIENT
  Age: 79 Year
  Sex: Male
  Weight: 89.3 kg

DRUGS (13)
  1. AZOR [Concomitant]
     Active Substance: AMLODIPINE BESYLATE\OLMESARTAN MEDOXOMIL
  2. PLAVIX [Concomitant]
     Active Substance: CLOPIDOGREL BISULFATE
  3. ARGININE [Concomitant]
     Active Substance: ARGININE
  4. ZINC [Concomitant]
     Active Substance: ZINC\ZINC CHLORIDE
  5. SENOKOT [Concomitant]
     Active Substance: SENNOSIDES
  6. TOPROL XL [Concomitant]
     Active Substance: METOPROLOL SUCCINATE
  7. ASPIRIN. [Concomitant]
     Active Substance: ASPIRIN
  8. SOFOSBUVIR 400MG [Suspect]
     Active Substance: SOFOSBUVIR
     Indication: HEPATITIS C
     Route: 048
     Dates: start: 20140429, end: 20140722
  9. FISH OIL [Concomitant]
     Active Substance: FISH OIL
  10. NOVOLOG [Concomitant]
     Active Substance: INSULIN ASPART
  11. RIBAVIRIN. [Suspect]
     Active Substance: RIBAVIRIN
     Indication: HEPATITIS C
     Route: 048
     Dates: start: 20140429, end: 20140722
  12. NOVOLOG [Concomitant]
     Active Substance: INSULIN ASPART
  13. SPIRIVA [Concomitant]
     Active Substance: TIOTROPIUM BROMIDE MONOHYDRATE

REACTIONS (10)
  - Nausea [None]
  - Hyperchlorhydria [None]
  - Dyspepsia [None]
  - Acute kidney injury [None]
  - Hyperkalaemia [None]
  - Gastroenteritis viral [None]
  - Dizziness [None]
  - Vomiting [None]
  - Diarrhoea [None]
  - Anaemia [None]

NARRATIVE: CASE EVENT DATE: 20140603
